FAERS Safety Report 4971610-8 (Version None)
Quarter: 2006Q2

REPORT INFORMATION
  Report Type: 
  Country: None (occurrence: None)
  Receive Date: 20060406
  Receipt Date: 20060316
  Transmission Date: 20061013
  Serious: Yes (Other)
  Sender: FDA-Public Use
  Company Number: AU200603006434

PATIENT
  Age: 30 Year
  Sex: Male

DRUGS (1)
  1. ZYPREXA [Suspect]
     Indication: BIPOLAR DISORDER
     Dates: start: 20060101

REACTIONS (1)
  - LEUKAEMIA [None]
